FAERS Safety Report 5214119-9 (Version None)
Quarter: 2007Q1

REPORT INFORMATION
  Report Type: 
  Country: None (occurrence: None)
  Receive Date: 20070122
  Receipt Date: 20070117
  Transmission Date: 20070707
  Serious: Yes (Other)
  Sender: FDA-Public Use
  Company Number: 2007UW00927

PATIENT
  Age: 60 Year
  Sex: Female
  Weight: 66.2 kg

DRUGS (2)
  1. ARIMIDEX [Suspect]
     Indication: BREAST CANCER
     Route: 048
     Dates: start: 20040101, end: 20061101
  2. ARIMIDEX [Suspect]
     Route: 048
     Dates: start: 20070101, end: 20070101

REACTIONS (6)
  - ABDOMINAL PAIN [None]
  - BLOOD POTASSIUM INCREASED [None]
  - BLOOD PRESSURE DECREASED [None]
  - BLOOD SODIUM ABNORMAL [None]
  - DIZZINESS [None]
  - PALPITATIONS [None]
